FAERS Safety Report 15637116 (Version 1)
Quarter: 2018Q4

REPORT INFORMATION
  Report Type: Spontaneous
  Country: US (occurrence: US)
  Receive Date: 20181120
  Receipt Date: 20181120
  Transmission Date: 20190205
  Serious: Yes (Death, Other)
  Sender: FDA-Public Use
  Company Number: US-ADAPT PHARMA INC-2018ADP00083

PATIENT
  Sex: Female

DRUGS (1)
  1. NARCAN [Suspect]
     Active Substance: NALOXONE HYDROCHLORIDE
     Indication: PRODUCT USED FOR UNKNOWN INDICATION
     Dosage: 4 MG, UNK
     Route: 045
     Dates: start: 20160817, end: 20160817

REACTIONS (2)
  - Product selection error [Recovered/Resolved]
  - Respiration abnormal [Fatal]

NARRATIVE: CASE EVENT DATE: 20160817
